FAERS Safety Report 22119474 (Version 1)
Quarter: 2023Q1

REPORT INFORMATION
  Report Type: Report from Study
  Country: US (occurrence: None)
  Receive Date: 20230321
  Receipt Date: 20230321
  Transmission Date: 20230417
  Serious: Yes (Death)
  Sender: FDA-Public Use
  Company Number: US-ROCHE-3313158

PATIENT

DRUGS (2)
  1. VEMURAFENIB [Suspect]
     Active Substance: VEMURAFENIB
     Indication: Pancreatic carcinoma
     Dosage: DATE OF LAST DOSE: 10-APR-2022
     Route: 065
     Dates: start: 20220321
  2. SORAFENIB [Suspect]
     Active Substance: SORAFENIB
     Indication: Pancreatic carcinoma
     Dosage: DATE OF LAST DOSE: 10-APR-2022
     Route: 065
     Dates: start: 20220321

REACTIONS (1)
  - Disease progression [Fatal]
